FAERS Safety Report 4816786-8 (Version None)
Quarter: 2005Q4

REPORT INFORMATION
  Report Type: 
  Country: None (occurrence: None)
  Receive Date: 20051028
  Receipt Date: 20050926
  Transmission Date: 20060501
  Serious: Yes (Hospitalization)
  Sender: FDA-Public Use
  Company Number: 2005001889

PATIENT
  Age: 68 Year
  Sex: Female

DRUGS (2)
  1. TARCEVA [Suspect]
     Indication: NON-SMALL CELL LUNG CANCER
     Dosage: SEE IMAGE, ORAL
     Route: 048
     Dates: start: 20050601
  2. TARCEVA [Suspect]
     Indication: NON-SMALL CELL LUNG CANCER
     Dosage: SEE IMAGE, ORAL
     Route: 048
     Dates: start: 20050801

REACTIONS (5)
  - BLISTER [None]
  - DEHYDRATION [None]
  - DRY SKIN [None]
  - PAIN IN EXTREMITY [None]
  - RASH [None]
